FAERS Safety Report 4609837-7 (Version None)
Quarter: 2005Q1

REPORT INFORMATION
  Report Type: 
  Country: None (occurrence: None)
  Receive Date: 20050316
  Receipt Date: 20000420
  Transmission Date: 20050727
  Serious: Yes (Hospitalization)
  Sender: FDA-Public Use
  Company Number: NZ01-00169

PATIENT
  Age: 81 Year
  Sex: Female
  Weight: 50 kg

DRUGS (7)
  1. CLEXANE [Suspect]
     Indication: THROMBOSIS PROPHYLAXIS
     Route: 058
     Dates: start: 19990721, end: 19990722
  2. FUROSEMIDE [Concomitant]
     Route: 048
  3. OMEPRAZOLE [Concomitant]
     Route: 048
  4. BUPIVACAINE [Concomitant]
     Route: 008
     Dates: start: 19990720, end: 19990720
  5. FENTANYL [Concomitant]
     Route: 008
     Dates: start: 19990720, end: 19990720
  6. BECLOMETHASONE DIPROPIONATE [Concomitant]
  7. COMBIVENT [Concomitant]

REACTIONS (4)
  - ASTHENIA [None]
  - EXTRADURAL HAEMATOMA [None]
  - HAEMOGLOBIN DECREASED [None]
  - PARAPLEGIA [None]
